FAERS Safety Report 7788270-3 (Version None)
Quarter: 2011Q3

REPORT INFORMATION
  Report Type: 
  Country: None (occurrence: None)
  Receive Date: 20110927
  Receipt Date: 20110916
  Transmission Date: 20111222
  Serious: Yes (Other)
  Sender: FDA-Public Use
  Company Number: AUR-APL-2011-05149

PATIENT
  Age: 66 Year
  Sex: Female
  Weight: 62.58 kg

DRUGS (9)
  1. ACETAMINOPHEN W/HYDROCODONE BITARTRATE (VICODIN) [Concomitant]
  2. ASPIRIN [Concomitant]
  3. BYSTOLIC [Concomitant]
  4. SIMVASTATIN [Suspect]
     Indication: BLOOD CHOLESTEROL
     Dosage: 20 MG, 1 D, ORAL
     Route: 048
  5. NEXIUM [Concomitant]
  6. NEURONTIN [Suspect]
     Indication: NEUROPATHY PERIPHERAL
     Dosage: 900 MG,  1 D, ORAL
     Route: 048
  7. CALTRATE 600 + VITAMIN D (CALCITE D) [Suspect]
     Indication: PRODUCT USED FOR UNKNOWN INDICATION
     Dosage: 1200 MG, 1 D, ORAL
     Route: 048
     Dates: start: 20110101, end: 20110901
  8. AMLODIPINE BESYLATE [Concomitant]
  9. VAGIFEM [Concomitant]

REACTIONS (10)
  - LIP DRY [None]
  - PROTEIN URINE [None]
  - SALIVARY GLAND NEOPLASM [None]
  - RENAL CYST [None]
  - BURNING SENSATION [None]
  - SWOLLEN TONGUE [None]
  - BLOOD CALCIUM INCREASED [None]
  - LIP PAIN [None]
  - BLOOD CHOLESTEROL INCREASED [None]
  - LIP SWELLING [None]
